FAERS Safety Report 6746428-6 (Version None)
Quarter: 2010Q2

REPORT INFORMATION
  Report Type: 
  Country: None (occurrence: None)
  Receive Date: 20100528
  Receipt Date: 20100521
  Transmission Date: 20101027
  Serious: Yes (Death)
  Sender: FDA-Public Use
  Company Number: US-ROCHE-699908

PATIENT
  Sex: Female

DRUGS (1)
  1. CAPECITABINE [Suspect]
     Dosage: 7 DAYS CYCLE
     Route: 048
     Dates: start: 20091014, end: 20091216

REACTIONS (1)
  - MALIGNANT NEOPLASM PROGRESSION [None]
